FAERS Safety Report 11839832 (Version 1)
Quarter: 2015Q4

REPORT INFORMATION
  Report Type: Spontaneous
  Country: US (occurrence: None)
  Receive Date: 20151215
  Receipt Date: 20151215
  Transmission Date: 20160305
  Serious: No
  Sender: FDA-Public Use
  Company Number: None

PATIENT
  Age: 51 Year
  Sex: Male

DRUGS (1)
  1. LUMIZYME [Suspect]
     Active Substance: ALGLUCOSIDASE ALFA
     Indication: GLYCOGEN STORAGE DISEASE TYPE II
     Dosage: 1540MG IN 500ML NS  EVERY 2 WEEKS  IV
     Route: 042
     Dates: start: 20151123

REACTIONS (2)
  - Vascular access complication [None]
  - Drug dose omission [None]

NARRATIVE: CASE EVENT DATE: 20151211
